FAERS Safety Report 13347888 (Version 1)
Quarter: 2017Q1

REPORT INFORMATION
  Report Type: Spontaneous
  Country: US (occurrence: US)
  Receive Date: 20170317
  Receipt Date: 20170317
  Transmission Date: 20170428
  Serious: Yes (Other)
  Sender: FDA-Public Use
  Company Number: US-ELI_LILLY_AND_COMPANY-US201703004958

PATIENT
  Sex: Female

DRUGS (3)
  1. HUMALOG [Suspect]
     Active Substance: INSULIN LISPRO
     Indication: TYPE 2 DIABETES MELLITUS
     Dosage: 17 U, TID
     Route: 065
     Dates: start: 2014
  2. LANTUS [Suspect]
     Active Substance: INSULIN GLARGINE
     Indication: PRODUCT USED FOR UNKNOWN INDICATION
     Dosage: 50 U, QD AT BEDTIME
     Route: 065
  3. HUMALOG [Suspect]
     Active Substance: INSULIN LISPRO
     Dosage: UNK UNK, PRN ADDITIONAL PER SLIDING SCALE
     Route: 065
     Dates: start: 2014

REACTIONS (5)
  - Muscle disorder [Unknown]
  - Fatigue [Unknown]
  - Poor quality sleep [Unknown]
  - Wrong drug administered [Recovered/Resolved]
  - Breast cancer [Recovered/Resolved]

NARRATIVE: CASE EVENT DATE: 201602
